FAERS Safety Report 17967194 (Version 1)
Quarter: 2020Q3

REPORT INFORMATION
  Report Type: Spontaneous
  Country: GB (occurrence: GB)
  Receive Date: 20200701
  Receipt Date: 20200701
  Transmission Date: 20201103
  Serious: Yes (Other)
  Sender: FDA-Public Use
  Company Number: NVSC2020GB179152

PATIENT
  Age: 46 Year
  Sex: Female
  Weight: 79 kg

DRUGS (1)
  1. CO?AMOXICLAV 500/125MG TABLETS [Suspect]
     Active Substance: AMOXICILLIN\CLAVULANATE POTASSIUM
     Indication: PRODUCT USED FOR UNKNOWN INDICATION
     Dosage: 3 DF (500 MG/125 MG)
     Route: 065
     Dates: start: 20200422, end: 20200429

REACTIONS (3)
  - Joint swelling [Recovering/Resolving]
  - Swelling face [Recovering/Resolving]
  - Rash [Recovering/Resolving]

NARRATIVE: CASE EVENT DATE: 20200429
